FAERS Safety Report 13165129 (Version 1)
Quarter: 2017Q1

REPORT INFORMATION
  Report Type: Other
  Country: DE (occurrence: DE)
  Receive Date: 20170130
  Receipt Date: 20170130
  Transmission Date: 20170428
  Serious: Yes (Congenital Anomaly, Other)
  Sender: FDA-Public Use
  Company Number: DE-LUPIN PHARMACEUTICALS INC.-E2B_00007205

PATIENT
  Sex: Male
  Weight: 2.76 kg

DRUGS (3)
  1. FOLIO (NAHRUNGSERGAENZUNGSMITTEL) [Concomitant]
     Indication: VITAMIN SUPPLEMENTATION
     Dosage: 0.4 MG/D
     Route: 064
     Dates: start: 20160129, end: 20160811
  2. TOPIRAMATE. [Suspect]
     Active Substance: TOPIRAMATE
     Dosage: FROM GW 29+6
     Route: 064
     Dates: end: 20160811
  3. TOPIRAMATE. [Suspect]
     Active Substance: TOPIRAMATE
     Indication: PRODUCT USED FOR UNKNOWN INDICATION
     Route: 064
     Dates: start: 20151103

REACTIONS (3)
  - Small for dates baby [Unknown]
  - Foetal exposure during pregnancy [Unknown]
  - Microcephaly [Unknown]

NARRATIVE: CASE EVENT DATE: 20160811
